FAERS Safety Report 14055943 (Version 2)
Quarter: 2017Q4

REPORT INFORMATION
  Report Type: Spontaneous
  Country: US (occurrence: US)
  Receive Date: 20171006
  Receipt Date: 20171124
  Transmission Date: 20180321
  Serious: No
  Sender: FDA-Public Use
  Company Number: US-JNJFOC-20170929017

PATIENT
  Age: 47 Year
  Sex: Male

DRUGS (5)
  1. LEVAQUIN [Suspect]
     Active Substance: LEVOFLOXACIN
     Indication: DERMATITIS
     Route: 048
     Dates: start: 20150120, end: 20150220
  2. LEVAQUIN [Suspect]
     Active Substance: LEVOFLOXACIN
     Indication: DERMATITIS
     Route: 048
     Dates: start: 20130215, end: 20130225
  3. LEVAQUIN [Suspect]
     Active Substance: LEVOFLOXACIN
     Indication: DERMATITIS
     Route: 048
     Dates: start: 20111205, end: 20120323
  4. LEVAQUIN [Suspect]
     Active Substance: LEVOFLOXACIN
     Indication: DERMATITIS
     Route: 048
  5. LEVAQUIN [Suspect]
     Active Substance: LEVOFLOXACIN
     Indication: DERMATITIS
     Route: 048
     Dates: start: 20141030

REACTIONS (1)
  - Tendon rupture [Unknown]

NARRATIVE: CASE EVENT DATE: 20160805
